FAERS Safety Report 21763609 (Version 3)
Quarter: 2023Q1

REPORT INFORMATION
  Report Type: Report from Study
  Country: CO (occurrence: CO)
  Receive Date: 20221222
  Receipt Date: 20230315
  Transmission Date: 20230418
  Serious: Yes (Hospitalization, Other)
  Sender: FDA-Public Use
  Company Number: CO-ABBVIE-4171569

PATIENT
  Sex: Female
  Weight: 85 kg

DRUGS (3)
  1. HUMIRA [Suspect]
     Active Substance: ADALIMUMAB
     Indication: Ankylosing spondylitis
     Dosage: 40MG/0.8 ML
     Route: 058
     Dates: start: 20160125
  2. HUMIRA [Suspect]
     Active Substance: ADALIMUMAB
  3. APIXABAN [Concomitant]
     Active Substance: APIXABAN
     Indication: Lung disorder
     Dosage: UNKNOWN
     Route: 048

REACTIONS (10)
  - Lung disorder [Recovering/Resolving]
  - Dyspnoea [Not Recovered/Not Resolved]
  - Chest pain [Not Recovered/Not Resolved]
  - Chest discomfort [Not Recovered/Not Resolved]
  - Back pain [Recovering/Resolving]
  - Cough [Not Recovered/Not Resolved]
  - Immune system disorder [Unknown]
  - Pleural effusion [Recovered/Resolved with Sequelae]
  - Lung abscess [Recovered/Resolved with Sequelae]
  - Pulmonary embolism [Not Recovered/Not Resolved]

NARRATIVE: CASE EVENT DATE: 20220101
